FAERS Safety Report 4414435-4 (Version None)
Quarter: 2004Q3

REPORT INFORMATION
  Report Type: 
  Country: None (occurrence: None)
  Receive Date: 20040701
  Receipt Date: 20040406
  Transmission Date: 20050211
  Serious: Yes (Other)
  Sender: FDA-Public Use
  Company Number: 200417530BWH

PATIENT
  Age: 74 Year
  Sex: Female

DRUGS (6)
  1. AVELOX [Suspect]
     Indication: PNEUMONIA
     Dosage: 400 MG, TOTAL DAILY, INTRAVENOUS
     Route: 042
     Dates: start: 20040317, end: 20040318
  2. KERLONE [Concomitant]
  3. VIACTIV / USA / [Concomitant]
  4. ZYRTEC [Concomitant]
  5. DIAZEPAM [Concomitant]
  6. LOTRISONE [Concomitant]

REACTIONS (1)
  - CONVULSION [None]
